FAERS Safety Report 24119974 (Version 2)
Quarter: 2024Q3

REPORT INFORMATION
  Report Type: Spontaneous
  Country: GR (occurrence: GR)
  Receive Date: 20240722
  Receipt Date: 20240809
  Transmission Date: 20241016
  Serious: Yes (Other)
  Sender: ABBVIE
  Company Number: GR-ABBVIE-5843842

PATIENT
  Age: 60 Year
  Sex: Female
  Weight: 65 kg

DRUGS (3)
  1. RINVOQ [Suspect]
     Active Substance: UPADACITINIB
     Indication: Rheumatoid arthritis
     Route: 048
     Dates: start: 20220509, end: 20240619
  2. VITAMIN D [Concomitant]
     Active Substance: VITAMIN D NOS
     Indication: Osteoporosis
  3. ACETAMINOPHEN [Concomitant]
     Active Substance: ACETAMINOPHEN
     Indication: Product used for unknown indication

REACTIONS (3)
  - Agranulocytosis [Recovered/Resolved]
  - Toxicity to various agents [Unknown]
  - Neutropenia [Unknown]

NARRATIVE: CASE EVENT DATE: 20240619
